FAERS Safety Report 25912971 (Version 2)
Quarter: 2025Q4

REPORT INFORMATION
  Report Type: Report from Study
  Country: US (occurrence: US)
  Receive Date: 20251013
  Receipt Date: 20251027
  Transmission Date: 20260117
  Serious: Yes (Other)
  Sender: MYLAN
  Company Number: US-MYLANLABS-2025M1085656

PATIENT
  Age: 24 Year
  Sex: Female

DRUGS (12)
  1. AMNESTEEM [Suspect]
     Active Substance: ISOTRETINOIN
     Indication: Product used for unknown indication
     Dosage: UNK
  2. AMNESTEEM [Suspect]
     Active Substance: ISOTRETINOIN
     Dosage: UNK
     Route: 065
  3. AMNESTEEM [Suspect]
     Active Substance: ISOTRETINOIN
     Dosage: UNK
     Route: 065
  4. AMNESTEEM [Suspect]
     Active Substance: ISOTRETINOIN
     Dosage: UNK
  5. AMNESTEEM [Suspect]
     Active Substance: ISOTRETINOIN
     Indication: Product used for unknown indication
     Dosage: 30 MILLIGRAM, BID (TWICE A DAY)
     Dates: start: 20250520, end: 20250928
  6. AMNESTEEM [Suspect]
     Active Substance: ISOTRETINOIN
     Dosage: 30 MILLIGRAM, BID (TWICE A DAY)
     Route: 065
     Dates: start: 20250520, end: 20250928
  7. AMNESTEEM [Suspect]
     Active Substance: ISOTRETINOIN
     Dosage: 30 MILLIGRAM, BID (TWICE A DAY)
     Route: 065
     Dates: start: 20250520, end: 20250928
  8. AMNESTEEM [Suspect]
     Active Substance: ISOTRETINOIN
     Dosage: 30 MILLIGRAM, BID (TWICE A DAY)
     Dates: start: 20250520, end: 20250928
  9. CLARAVIS [Concomitant]
     Active Substance: ISOTRETINOIN
     Dosage: UNK
  10. CLARAVIS [Concomitant]
     Active Substance: ISOTRETINOIN
     Dosage: UNK
     Route: 065
  11. CLARAVIS [Concomitant]
     Active Substance: ISOTRETINOIN
     Dosage: UNK
     Route: 065
  12. CLARAVIS [Concomitant]
     Active Substance: ISOTRETINOIN
     Dosage: UNK

REACTIONS (1)
  - Maternal exposure during pregnancy [Unknown]

NARRATIVE: CASE EVENT DATE: 20251002
